FAERS Safety Report 17348384 (Version 2)
Quarter: 2020Q1

REPORT INFORMATION
  Report Type: Spontaneous
  Country: US (occurrence: US)
  Receive Date: 20200130
  Receipt Date: 20200203
  Transmission Date: 20200409
  Serious: Yes (Other)
  Sender: FDA-Public Use
  Company Number: US-PFIZER INC-2020041585

PATIENT
  Age: 54 Year
  Sex: Female
  Weight: 49.9 kg

DRUGS (2)
  1. OGEN [Suspect]
     Active Substance: ESTROPIPATE
     Indication: MENOPAUSE
     Dosage: UNK
     Dates: start: 1995
  2. OGEN [Suspect]
     Active Substance: ESTROPIPATE
     Indication: HOT FLUSH
     Dosage: UNK (REDUCED DOSE BY HALF)
     Dates: start: 2000, end: 2000

REACTIONS (1)
  - Breast cancer [Unknown]

NARRATIVE: CASE EVENT DATE: 2000
